FAERS Safety Report 13232647 (Version 1)
Quarter: 2017Q1

REPORT INFORMATION
  Report Type: Report from Study
  Country: BR (occurrence: BR)
  Receive Date: 20170214
  Receipt Date: 20170214
  Transmission Date: 20170428
  Serious: Yes (Other)
  Sender: FDA-Public Use
  Company Number: PHHY2017BR019402

PATIENT
  Sex: Female

DRUGS (1)
  1. FORASEQ [Suspect]
     Active Substance: BUDESONIDE\FORMOTEROL FUMARATE
     Indication: PRODUCT USED FOR UNKNOWN INDICATION
     Dosage: (400 UG AS REPORTED)
     Route: 065

REACTIONS (4)
  - Asthmatic crisis [Unknown]
  - Dyspnoea [Unknown]
  - Bronchitis [Unknown]
  - Speech disorder [Unknown]
